FAERS Safety Report 13876343 (Version 2)
Quarter: 2017Q3

REPORT INFORMATION
  Report Type: Spontaneous
  Country: US (occurrence: US)
  Receive Date: 20170817
  Receipt Date: 20170824
  Transmission Date: 20171127
  Serious: No
  Sender: FDA-Public Use
  Company Number: US-BAYER-2017-149419

PATIENT
  Age: 72 Year
  Sex: Male
  Weight: 60 kg

DRUGS (4)
  1. NEXIUM [Concomitant]
     Active Substance: ESOMEPRAZOLE MAGNESIUM
     Dosage: UNK
  2. MIRALAX [Suspect]
     Active Substance: POLYETHYLENE GLYCOL 3350
     Dosage: 1 TABLESPOON
     Route: 048
  3. FIBER [Concomitant]
     Active Substance: PSYLLIUM HUSK
     Dosage: UNK
  4. LIPITOR [Concomitant]
     Active Substance: ATORVASTATIN CALCIUM
     Dosage: UNK

REACTIONS (8)
  - Product use issue [Unknown]
  - Product label confusion [None]
  - Physical product label issue [None]
  - Inappropriate prescribing [Unknown]
  - Product use in unapproved indication [Unknown]
  - Underdose [Unknown]
  - Intentional product use issue [Unknown]
  - Incorrect drug administration duration [Unknown]
